FAERS Safety Report 23996615 (Version 2)
Quarter: 2024Q2

REPORT INFORMATION
  Report Type: Spontaneous
  Country: CA (occurrence: CA)
  Receive Date: 20240620
  Receipt Date: 20240621
  Transmission Date: 20240716
  Serious: Yes (Death, Other)
  Sender: FDA-Public Use
  Company Number: CA-009507513-2405CAN005508

PATIENT
  Age: 33 Year
  Sex: Male

DRUGS (1)
  1. KEYTRUDA [Suspect]
     Active Substance: PEMBROLIZUMAB
     Indication: Soft tissue sarcoma
     Dosage: 200 MILLIGRAM, Q3W
     Route: 065
     Dates: start: 202211, end: 202304

REACTIONS (2)
  - Malignant neoplasm progression [Fatal]
  - Off label use [Unknown]
